FAERS Safety Report 25377662 (Version 3)
Quarter: 2025Q2

REPORT INFORMATION
  Report Type: Spontaneous
  Country: BG (occurrence: BG)
  Receive Date: 20250530
  Receipt Date: 20250617
  Transmission Date: 20250716
  Serious: Yes (Other)
  Sender: BAXTER
  Company Number: BG-BAXTER-2025BAX016045

PATIENT
  Age: 46 Year
  Sex: Male

DRUGS (4)
  1. FLUCONAZOLE [Suspect]
     Active Substance: FLUCONAZOLE
     Indication: Cryptococcosis
     Dosage: 150 MG ONCE DAILY FOR A PERIOD OF 1 MONTH
     Route: 065
  2. FLUCONAZOLE [Suspect]
     Active Substance: FLUCONAZOLE
     Dosage: 150 MG, QD, TWO-MONTH COURSE
     Route: 065
  3. FLUCONAZOLE [Suspect]
     Active Substance: FLUCONAZOLE
     Dosage: 1800 MG DAILY FOR HALF A YEAR
     Route: 065
  4. METHYLPREDNISOLONE [Concomitant]
     Active Substance: METHYLPREDNISOLONE
     Indication: Sarcoidosis
     Route: 065

REACTIONS (3)
  - Meningitis cryptococcal [Unknown]
  - Hypogammaglobulinaemia [Unknown]
  - Drug ineffective [Unknown]
